FAERS Safety Report 8606036-9 (Version None)
Quarter: 2012Q3

REPORT INFORMATION
  Report Type: 
  Country: None (occurrence: None)
  Receive Date: 20120820
  Receipt Date: 20120808
  Transmission Date: 20120928
  Serious: Yes (Hospitalization)
  Sender: FDA-Public Use
  Company Number: US-ROCHE-1099537

PATIENT
  Sex: Male

DRUGS (3)
  1. PEGASYS [Suspect]
     Indication: HEPATITIS C
     Dates: start: 20120511
  2. INCIVEK [Suspect]
     Indication: HEPATITIS C
     Dates: start: 20120511, end: 20120727
  3. RIBAVIRIN [Suspect]
     Indication: HEPATITIS C

REACTIONS (7)
  - TRANSFUSION [None]
  - DECREASED APPETITE [None]
  - GAIT DISTURBANCE [None]
  - DRY MOUTH [None]
  - FATIGUE [None]
  - DYSGEUSIA [None]
  - ASTHENIA [None]
